FAERS Safety Report 4915185-8 (Version None)
Quarter: 2006Q1

REPORT INFORMATION
  Report Type: 
  Country: None (occurrence: None)
  Receive Date: 20060216
  Receipt Date: 20060216
  Transmission Date: 20060701
  Serious: Yes (Hospitalization)
  Sender: FDA-Public Use
  Company Number: None

PATIENT
  Sex: Female
  Weight: 83.9154 kg

DRUGS (1)
  1. NIACIN [Suspect]
     Indication: BLOOD CHOLESTEROL
     Dosage: UNKNOW, PO  PRIOR TO ADMISSION
     Route: 048

REACTIONS (4)
  - ANXIETY [None]
  - ERYTHEMA [None]
  - HEART RATE INCREASED [None]
  - PRURITUS [None]
